FAERS Safety Report 26019138 (Version 1)
Quarter: 2025Q4

REPORT INFORMATION
  Report Type: Report from Study
  Country: ZA (occurrence: ZA)
  Receive Date: 20251110
  Receipt Date: 20251110
  Transmission Date: 20260118
  Serious: Yes (Other)
  Sender: ROCHE
  Company Number: ZA-ROCHE-10000166239

PATIENT
  Sex: Female

DRUGS (3)
  1. VABYSMO [Suspect]
     Active Substance: FARICIMAB-SVOA
     Indication: Macular degeneration
     Dosage: 2ND INJECTION - 12/NOV/2024 IN RIGHT EYE?3RD INJECTION - 30/DEC/2024 IN RIGHT EYE?4TH INJECTION- 04/
     Route: 050
     Dates: start: 20241008
  2. VABYSMO [Suspect]
     Active Substance: FARICIMAB-SVOA
     Route: 050
  3. VABYSMO [Suspect]
     Active Substance: FARICIMAB-SVOA
     Route: 050

REACTIONS (4)
  - Off label use [Unknown]
  - Malaise [Unknown]
  - Visual impairment [Unknown]
  - Retinal thickening [Unknown]
